FAERS Safety Report 5798284-0 (Version None)
Quarter: 2008Q3

REPORT INFORMATION
  Report Type: 
  Country: None (occurrence: None)
  Receive Date: 20080702
  Receipt Date: 20080626
  Transmission Date: 20090109
  Serious: Yes (Other)
  Sender: FDA-Public Use
  Company Number: US-ASTRAZENECA-2008UW12841

PATIENT
  Age: 79 Year
  Sex: Female
  Weight: 70.3 kg

DRUGS (1)
  1. MERREM [Suspect]
     Indication: INFECTION
     Dosage: 1 G/ 100 ML
     Route: 042
     Dates: start: 20080620

REACTIONS (7)
  - CHOKING [None]
  - CONSTIPATION [None]
  - DYSPNOEA [None]
  - EYE DISORDER [None]
  - GASTRIC ULCER [None]
  - MECHANICAL VENTILATION [None]
  - TREMOR [None]
